FAERS Safety Report 23968277 (Version 1)
Quarter: 2024Q2

REPORT INFORMATION
  Report Type: Spontaneous
  Country: US (occurrence: US)
  Receive Date: 20240612
  Receipt Date: 20240612
  Transmission Date: 20240715
  Serious: No
  Sender: FDA-Public Use
  Company Number: US-PERRIGO-24US002991

PATIENT
  Sex: Female

DRUGS (2)
  1. DICLOFENAC SODIUM [Suspect]
     Active Substance: DICLOFENAC\DICLOFENAC SODIUM
     Indication: Pain
     Dosage: UNKNOWN, MORE THAN QID
     Route: 061
     Dates: start: 2021
  2. ALEVEX [Concomitant]
     Active Substance: CAMPHOR (SYNTHETIC)\MENTHOL
     Indication: Product used for unknown indication
     Dosage: UNKNOWN
     Route: 065

REACTIONS (5)
  - Headache [Unknown]
  - Hypoaesthesia [Unknown]
  - Application site exfoliation [Unknown]
  - Application site pruritus [Unknown]
  - Inappropriate schedule of product administration [Unknown]

NARRATIVE: CASE EVENT DATE: 20210101
